APPROVED DRUG PRODUCT: CHOLESTYRAMINE LIGHT
Active Ingredient: CHOLESTYRAMINE
Strength: EQ 4GM RESIN/PACKET
Dosage Form/Route: POWDER;ORAL
Application: A209599 | Product #001 | TE Code: AB
Applicant: PHARMOBEDIENT CONSULTING
Approved: Nov 12, 2020 | RLD: No | RS: No | Type: RX